FAERS Safety Report 12839890 (Version 4)
Quarter: 2018Q1

REPORT INFORMATION
  Report Type: Report from Study
  Country: IN (occurrence: IN)
  Receive Date: 20161012
  Receipt Date: 20180122
  Transmission Date: 20180508
  Serious: Yes (Hospitalization)
  Sender: FDA-Public Use
  Company Number: IN-PFIZER INC-2016465441

PATIENT
  Age: 71 Year
  Sex: Male
  Weight: 54 kg

DRUGS (12)
  1. CARVEDILOL. [Concomitant]
     Active Substance: CARVEDILOL
     Indication: HYPERTENSION
     Dosage: 25 MG, 1X/DAY
     Route: 048
     Dates: start: 20010101
  2. CARBOPLATIN. [Suspect]
     Active Substance: CARBOPLATIN
     Indication: LUNG NEOPLASM MALIGNANT
     Dosage: 378.53 MG, UNK
     Route: 042
     Dates: start: 20160928, end: 20160928
  3. PF-06439535 [Suspect]
     Active Substance: INVESTIGATIONAL BIOSIMILARS
     Indication: NON-SMALL CELL LUNG CANCER
     Dosage: 870 MG, EVERY 3 WEEKS
     Route: 042
     Dates: start: 20160715, end: 20160928
  4. DEXAMETHASONE. [Concomitant]
     Active Substance: DEXAMETHASONE
     Indication: PROPHYLAXIS
     Dosage: 32 MG, 1X/DAY
     Route: 042
     Dates: start: 20160928, end: 20160928
  5. ZOLEDRONIC ACID [Concomitant]
     Active Substance: ZOLEDRONIC ACID
     Indication: METASTASES TO BONE
     Dosage: 4 MG, 1X/DAY
     Route: 042
     Dates: start: 20160928, end: 20160928
  6. ONDANSETRONE ACCORD HEALTHCARE [Concomitant]
     Indication: PROPHYLAXIS OF NAUSEA AND VOMITING
     Dosage: 4 MG, 2X/DAY
     Route: 048
     Dates: start: 20160928, end: 20161001
  7. PACLITAXEL. [Suspect]
     Active Substance: PACLITAXEL
     Indication: LUNG NEOPLASM MALIGNANT
     Dosage: 276.5 MG, UNK
     Route: 042
     Dates: start: 20160928, end: 20160928
  8. GRANISETRON [Concomitant]
     Active Substance: GRANISETRON
     Indication: PROPHYLAXIS
     Dosage: 3 MG, 1X/DAY
     Route: 042
     Dates: start: 20160928, end: 20160928
  9. RANITIDINE. [Concomitant]
     Active Substance: RANITIDINE
     Indication: PROPHYLAXIS
     Dosage: 50 MG, 1X/DAY
     Route: 042
     Dates: start: 20160928, end: 20160928
  10. DEXAMETHASONE. [Concomitant]
     Active Substance: DEXAMETHASONE
     Indication: PROPHYLAXIS
     Dosage: 4 MG, 2X/DAY
     Route: 048
     Dates: start: 20160928, end: 20161001
  11. DOMPERIDONE [Concomitant]
     Active Substance: DOMPERIDONE
     Indication: PROPHYLAXIS
     Dosage: 10 MG, 2X/DAY
     Route: 048
     Dates: start: 20160928, end: 20161001
  12. PANTOPRAZOLE [Concomitant]
     Active Substance: PANTOPRAZOLE
     Indication: PROPHYLAXIS OF NAUSEA AND VOMITING
     Dosage: 40 MG, 2X/DAY
     Route: 048
     Dates: start: 20160928, end: 20161001

REACTIONS (1)
  - Gastroenteritis [Recovered/Resolved]

NARRATIVE: CASE EVENT DATE: 20161002
